FAERS Safety Report 9403028 (Version 1)
Quarter: 2013Q3

REPORT INFORMATION
  Report Type: Spontaneous
  Country: FR (occurrence: FR)
  Receive Date: 20130716
  Receipt Date: 20130716
  Transmission Date: 20140515
  Serious: Yes (Hospitalization)
  Sender: FDA-Public Use
  Company Number: FR-ASTRAZENECA-2013SE52150

PATIENT
  Age: 1614 Week
  Sex: Female

DRUGS (12)
  1. INEXIUM [Suspect]
     Route: 048
  2. DIFFU K [Suspect]
     Route: 065
  3. PREVISCAN [Suspect]
     Route: 048
     Dates: end: 201208
  4. PREVISCAN [Suspect]
     Route: 048
  5. LYSODREN [Suspect]
     Route: 048
     Dates: start: 201205
  6. HYDROCORTISONE [Suspect]
     Dosage: 40 MG AT MORNING, 40 MG AT MIDDAY, 20 MG AT 16:00 PM
     Route: 048
  7. LASILIX [Suspect]
     Route: 048
  8. FLUCORTAC [Suspect]
     Route: 065
  9. PRIMPERAN [Suspect]
     Route: 065
  10. POTASSIUM [Suspect]
     Route: 065
  11. ACUPAN [Suspect]
     Route: 065
  12. MYOLASTAN [Suspect]
     Route: 065

REACTIONS (3)
  - Accidental overdose [Recovered/Resolved]
  - Haemorrhagic ovarian cyst [Unknown]
  - Melanocytic naevus [Unknown]
